FAERS Safety Report 5736493-7 (Version None)
Quarter: 2008Q2

REPORT INFORMATION
  Report Type: 
  Country: None (occurrence: None)
  Receive Date: 20080509
  Receipt Date: 20080509
  Transmission Date: 20081010
  Serious: No
  Sender: FDA-Public Use
  Company Number: None

PATIENT
  Age: 55 Year
  Sex: Female
  Weight: 91.6266 kg

DRUGS (1)
  1. DIGITEK  250 MCG  BERTEK PHARM [Suspect]
     Indication: HEART RATE IRREGULAR
     Dosage: 250MCG DAILY PO
     Route: 048
     Dates: start: 20071123, end: 20080508

REACTIONS (5)
  - BLOOD PRESSURE DECREASED [None]
  - DIZZINESS [None]
  - FATIGUE [None]
  - PHARMACEUTICAL PRODUCT COMPLAINT [None]
  - SOMNOLENCE [None]
